FAERS Safety Report 7922345-0 (Version None)
Quarter: 2011Q4

REPORT INFORMATION
  Report Type: 
  Country: None (occurrence: None)
  Receive Date: 20111117
  Receipt Date: 20110118
  Transmission Date: 20120403
  Serious: No
  Sender: FDA-Public Use
  Company Number: US-AMGEN-USASP2011002344

PATIENT
  Age: 62 Year
  Sex: Female

DRUGS (3)
  1. ENBREL [Suspect]
     Indication: ANKYLOSING SPONDYLITIS
  2. PLAQUENIL [Concomitant]
     Dates: start: 20101101
  3. ENBREL [Suspect]
     Indication: PSORIATIC ARTHROPATHY
     Dosage: 50 MG, QWK
     Dates: start: 20090817

REACTIONS (12)
  - COUGH [None]
  - PSORIATIC ARTHROPATHY [None]
  - ANKYLOSING SPONDYLITIS [None]
  - JOINT SWELLING [None]
  - PYREXIA [None]
  - PAIN [None]
  - STRESS [None]
  - DYSPNOEA [None]
  - ARTHRALGIA [None]
  - MUSCULOSKELETAL STIFFNESS [None]
  - INFLUENZA LIKE ILLNESS [None]
  - HYPERSOMNIA [None]
